FAERS Safety Report 8976567 (Version 1)
Quarter: 2012Q4

REPORT INFORMATION
  Report Type: 
  Country: US (occurrence: US)
  Receive Date: 20121220
  Receipt Date: 20121220
  Transmission Date: 20130627
  Serious: Yes (Other)
  Sender: FDA-Public Use
  Company Number: CHPA2012US025054

PATIENT
  Age: 55 Year
  Sex: Female

DRUGS (1)
  1. 4 WAY FAST ACTING NASAL SPRAY [Suspect]
     Indication: NASAL CONGESTION
     Dosage: Unk, QD
     Route: 045
     Dates: start: 1975, end: 2005

REACTIONS (7)
  - Drug dependence [Recovered/Resolved]
  - Anosmia [Recovered/Resolved]
  - Ageusia [Recovered/Resolved]
  - Dyspnoea [Recovered/Resolved]
  - Nasal congestion [Recovered/Resolved]
  - Rebound effect [Recovered/Resolved]
  - Incorrect drug administration duration [Unknown]
